FAERS Safety Report 23476568 (Version 1)
Quarter: 2024Q1

REPORT INFORMATION
  Report Type: Spontaneous
  Country: BR (occurrence: BR)
  Receive Date: 20240204
  Receipt Date: 20240204
  Transmission Date: 20240410
  Serious: No
  Sender: FDA-Public Use
  Company Number: BR-EXELIXIS-CABO-23063549

PATIENT
  Sex: Female
  Weight: 59 kg

DRUGS (18)
  1. CABOMETYX [Suspect]
     Active Substance: CABOZANTINIB S-MALATE
     Indication: Metastases to lung
     Dosage: 60 MG, QD (30 TABLETS, 1 TABLET DAILY)
     Route: 065
     Dates: start: 202302
  2. PANTOPRAZOLE [Concomitant]
     Active Substance: PANTOPRAZOLE
  3. PURAN [Concomitant]
     Active Substance: LEVOTHYROXINE SODIUM
     Dosage: 88 MG (01 CP/D MORNING/FAST)
  4. AMLODIPINE [Concomitant]
     Active Substance: AMLODIPINE BESYLATE
     Indication: Blood cholesterol
     Dosage: 1 CP/DAILY - MORNING
  5. INDAPAMIDE [Concomitant]
     Active Substance: INDAPAMIDE
     Dosage: 1 CP/DAILY - MORNING
  6. SIMVASTATIN [Concomitant]
     Active Substance: SIMVASTATIN
     Dosage: 20 MG (01 CP/NIGHT)
  7. PRESS PLUS [Concomitant]
     Indication: Blood pressure measurement
     Dosage: 5/20 MG 01 CP/DAILY - MORNING
  8. GLIFAGE [Concomitant]
     Active Substance: METFORMIN HYDROCHLORIDE
     Indication: Diabetes mellitus
     Dosage: 500 MG (01 CP/MORNING, AFTERNOON AND EVENING)
  9. VITAMIN E [Concomitant]
     Active Substance: .ALPHA.-TOCOPHEROL
     Dosage: 400 MG, QD (01 CP/DAILY MORNING)
  10. CALCIUM [Concomitant]
     Active Substance: CALCIUM
     Dosage: 600 MG (01 CP/AT LUNCHTIME)
  11. VITAMIN D [Concomitant]
     Active Substance: VITAMIN D NOS
     Dosage: 400 MG, QD
  12. HERBALS\LINSEED OIL [Concomitant]
     Active Substance: HERBALS\LINSEED OIL
     Dosage: 1000 MG (01 CP/AT LUNCHTIME)
  13. LENVIMA [Concomitant]
     Active Substance: LENVATINIB
     Dosage: 4 MG CX C 30/01 LENVIMA 10 MG CX C 30, USED 14 MG
  14. LOPERAMIDE [Concomitant]
     Active Substance: LOPERAMIDE
  15. BROMOPRIDE [Concomitant]
     Active Substance: BROMOPRIDE
  16. Tylex [Concomitant]
     Dosage: 300 MG (01 CP EVERY 8 HOURS)
  17. ENAVO [Concomitant]
     Dosage: 8 MG (01 CP EVERY 8 HOURS)
  18. METAMIZOLE [Concomitant]
     Active Substance: METAMIZOLE
     Dosage: 1 G (1 CP/DAILY-WHEN IN PAIN)

REACTIONS (5)
  - Pain [Unknown]
  - Diarrhoea [Unknown]
  - Nausea [Unknown]
  - Headache [Unknown]
  - Abdominal pain upper [Unknown]
